FAERS Safety Report 12906090 (Version 2)
Quarter: 2016Q4

REPORT INFORMATION
  Report Type: Spontaneous
  Country: US (occurrence: US)
  Receive Date: 20161103
  Receipt Date: 20161223
  Transmission Date: 20170207
  Serious: No
  Sender: FDA-Public Use
  Company Number: US-TAKEDA-2016MPI009329

PATIENT
  Age: 81 Year
  Sex: Male

DRUGS (1)
  1. NINLARO [Suspect]
     Active Substance: IXAZOMIB
     Indication: PLASMA CELL MYELOMA
     Dosage: 4 MG, 1/WEEK
     Route: 048
     Dates: start: 20161017

REACTIONS (3)
  - Accidental exposure to product [Unknown]
  - Product physical issue [Unknown]
  - Fall [Unknown]

NARRATIVE: CASE EVENT DATE: 20161025
